FAERS Safety Report 9011743 (Version 1)
Quarter: 2013Q1

REPORT INFORMATION
  Report Type: Spontaneous
  Country: US (occurrence: US)
  Receive Date: 20130114
  Receipt Date: 20130114
  Transmission Date: 20140127
  Serious: Yes (Other)
  Sender: FDA-Public Use
  Company Number: US-009507513-0907USA03705

PATIENT
  Age: 14 Year
  Sex: Female
  Weight: 61.24 kg

DRUGS (2)
  1. SINGULAIR [Suspect]
     Indication: MULTIPLE ALLERGIES
     Dosage: 1X DAILY PO ORAL
     Route: 048
     Dates: start: 20070207, end: 20081017
  2. SINGULAIR [Suspect]
     Indication: ASTHMA

REACTIONS (6)
  - Abnormal behaviour [Unknown]
  - Agitation [Unknown]
  - Depression [Unknown]
  - Feeling of despair [Unknown]
  - Mood swings [Unknown]
  - Suicidal ideation [Unknown]
